FAERS Safety Report 6649968-3 (Version None)
Quarter: 2010Q1

REPORT INFORMATION
  Report Type: 
  Country: None (occurrence: None)
  Receive Date: 20100324
  Receipt Date: 20100324
  Transmission Date: 20100710
  Serious: No
  Sender: FDA-Public Use
  Company Number: None

PATIENT
  Age: 9 Year
  Sex: Male
  Weight: 117.028 kg

DRUGS (2)
  1. LAMICTAL [Suspect]
     Indication: CONVULSION
     Dosage: 200MG 2 BID ; 25MG 2 BID
     Dates: start: 20050101
  2. LAMICTAL [Suspect]
     Indication: PARTIAL SEIZURES
     Dosage: 200MG 2 BID ; 25MG 2 BID
     Dates: start: 20050101

REACTIONS (2)
  - CONVULSION [None]
  - DRUG INEFFECTIVE [None]
